FAERS Safety Report 8097102-8 (Version None)
Quarter: 2012Q1

REPORT INFORMATION
  Report Type: 
  Country: None (occurrence: None)
  Receive Date: 20120129
  Receipt Date: 20111121
  Transmission Date: 20120608
  Serious: No
  Sender: FDA-Public Use
  Company Number: US-ABBOTT-11P-163-0876467-00

PATIENT
  Age: 62 Year
  Sex: Female

DRUGS (8)
  1. METOPROLOL TARTRATE [Concomitant]
     Indication: HYPERTENSION
  2. PRANDIN [Concomitant]
     Indication: DIABETES MELLITUS
  3. HUMIRA [Suspect]
     Indication: PSORIASIS
     Dates: start: 20111116
  4. SYMBICORT [Concomitant]
     Indication: ASTHMA
  5. SPIRIVA [Concomitant]
     Indication: ASTHMA
     Dosage: DAILY
  6. TRIAMTERENE AND HYDROCHLOROTHIAZIDE [Concomitant]
     Indication: JOINT SWELLING
     Dosage: 37.5MG/25MG: TWICE DAILY
  7. SINGULAIR [Concomitant]
     Indication: ASTHMA
     Dosage: DAILY
  8. ALLEGRA [Concomitant]
     Indication: PRURITUS
     Dosage: DAILY

REACTIONS (5)
  - NAUSEA [None]
  - DYSPNOEA [None]
  - INCORRECT DOSE ADMINISTERED [None]
  - INFECTION [None]
  - WRONG TECHNIQUE IN DRUG USAGE PROCESS [None]
